FAERS Safety Report 23113366 (Version 1)
Quarter: 2023Q4

REPORT INFORMATION
  Report Type: Spontaneous
  Country: FR (occurrence: FR)
  Receive Date: 20231027
  Receipt Date: 20231027
  Transmission Date: 20240110
  Serious: Yes (Life-Threatening, Other)
  Sender: FDA-Public Use
  Company Number: FR-AFSSAPS-BX2023001862

PATIENT
  Age: 76 Year
  Sex: Male
  Weight: 80 kg

DRUGS (6)
  1. RISPERIDONE [Suspect]
     Active Substance: RISPERIDONE
     Indication: Product used for unknown indication
     Dosage: 1 DOSAGE FORM, TOTAL
     Route: 048
     Dates: start: 20230917, end: 20230917
  2. TRILEPTAL [Suspect]
     Active Substance: OXCARBAZEPINE
     Indication: Wrong drug
     Dosage: 1 DOSAGE FORM, TOTAL
     Route: 048
     Dates: start: 20230917, end: 20230917
  3. LEVOTHYROXINE [Suspect]
     Active Substance: LEVOTHYROXINE
     Indication: Wrong drug
     Dosage: 1 DOSAGE FORM, TOTAL
     Route: 048
     Dates: start: 20230917, end: 20230917
  4. TRIHEXYPHENIDYL HYDROCHLORIDE [Suspect]
     Active Substance: TRIHEXYPHENIDYL HYDROCHLORIDE
     Indication: Wrong drug
     Dosage: 1 DOSAGE FORM, TOTAL
     Route: 048
     Dates: start: 20230917, end: 20230917
  5. CYAMEMAZINE [Suspect]
     Active Substance: CYAMEMAZINE
     Indication: Wrong drug
     Dosage: 50 MILLIGRAM, TOTAL
     Route: 048
     Dates: start: 20230917, end: 20230917
  6. VALPROATE SODIUM [Suspect]
     Active Substance: VALPROATE SODIUM
     Indication: Wrong drug
     Dosage: 1 GRAM, TOTAL
     Route: 048
     Dates: start: 20230917, end: 20230917

REACTIONS (2)
  - Coma [Not Recovered/Not Resolved]
  - Wrong drug [Not Recovered/Not Resolved]

NARRATIVE: CASE EVENT DATE: 20230917
